FAERS Safety Report 19891750 (Version 1)
Quarter: 2021Q3

REPORT INFORMATION
  Report Type: Spontaneous
  Country: FR (occurrence: FR)
  Receive Date: 20210928
  Receipt Date: 20210928
  Transmission Date: 20211014
  Serious: Yes (Other)
  Sender: FDA-Public Use
  Company Number: FR-009507513-2109FRA004503

PATIENT
  Age: 75 Year
  Sex: Male

DRUGS (1)
  1. KEYTRUDA [Suspect]
     Active Substance: PEMBROLIZUMAB
     Indication: LUNG ADENOCARCINOMA
     Dosage: 4 CYLCES, FOLLOWED BY 3 CYCLES ALONE
     Dates: start: 202103

REACTIONS (2)
  - Optic neuritis [Unknown]
  - Blindness [Unknown]

NARRATIVE: CASE EVENT DATE: 202108
